FAERS Safety Report 5532472-3 (Version None)
Quarter: 2007Q4

REPORT INFORMATION
  Report Type: 
  Country: None (occurrence: None)
  Receive Date: 20071203
  Receipt Date: 20071121
  Transmission Date: 20080405
  Serious: Yes (Hospitalization)
  Sender: FDA-Public Use
  Company Number: JP-PFIZER INC-2007098377

PATIENT
  Sex: Male
  Weight: 58 kg

DRUGS (10)
  1. VFEND [Suspect]
     Indication: PNEUMONIA FUNGAL
     Dosage: DAILY DOSE:600MG
     Route: 042
     Dates: start: 20071006, end: 20071006
  2. VFEND [Suspect]
     Route: 042
     Dates: start: 20071007, end: 20071022
  3. CIPROFLOXACIN [Suspect]
     Indication: PNEUMONIA
     Dosage: DAILY DOSE:600MG
     Route: 042
     Dates: start: 20071016, end: 20071022
  4. NEUTROGIN [Suspect]
     Indication: NEUTROPENIA
     Dosage: DAILY DOSE:100MCG
     Route: 058
     Dates: start: 20070926, end: 20071022
  5. VANCOMYCIN [Suspect]
     Indication: PNEUMONIA STAPHYLOCOCCAL
     Dosage: DAILY DOSE:1GRAM
     Route: 042
     Dates: start: 20071009, end: 20071022
  6. MICAFUNGIN [Concomitant]
     Route: 042
     Dates: start: 20070908, end: 20071005
  7. DESFERAL [Concomitant]
     Route: 030
  8. PRIMOBOLAN [Concomitant]
     Route: 048
  9. QVAR 40 [Concomitant]
     Route: 055
  10. VALSARTAN [Concomitant]
     Route: 048
     Dates: end: 20071101

REACTIONS (1)
  - INTERSTITIAL LUNG DISEASE [None]
